FAERS Safety Report 6726731-6 (Version None)
Quarter: 2010Q2

REPORT INFORMATION
  Report Type: 
  Country: None (occurrence: None)
  Receive Date: 20100514
  Receipt Date: 20100507
  Transmission Date: 20101027
  Serious: Yes (Hospitalization, Other)
  Sender: FDA-Public Use
  Company Number: US-ROCHE-702575

PATIENT
  Age: 57 Year
  Sex: Male
  Weight: 83.5 kg

DRUGS (11)
  1. PEGINTERFERON ALFA-2A [Suspect]
     Indication: HEPATITIS C
     Route: 058
     Dates: start: 20090428, end: 20100319
  2. RIBAVIRIN [Suspect]
     Indication: HEPATITIS C
     Route: 048
     Dates: start: 20090424, end: 20100325
  3. BLINDED BOCEPREVIR [Suspect]
     Indication: HEPATITIS C
     Route: 048
     Dates: start: 20090522, end: 20100325
  4. VALSARTAN [Concomitant]
     Dates: start: 20080101
  5. ESCITALOPRAM [Concomitant]
     Dates: start: 20080101
  6. DIAZEPAM [Concomitant]
     Dates: start: 20090106
  7. OMEPRAZOLE [Concomitant]
     Dates: start: 20040101
  8. ACETAMINOPHEN [Concomitant]
     Dates: start: 20090424
  9. LEXAPRO [Concomitant]
  10. DIOVAN [Concomitant]
  11. CIPRO [Concomitant]

REACTIONS (3)
  - FALL [None]
  - POISONING [None]
  - SUBARACHNOID HAEMORRHAGE [None]
